FAERS Safety Report 6122194-2 (Version None)
Quarter: 2009Q1

REPORT INFORMATION
  Report Type: 
  Country: None (occurrence: None)
  Receive Date: 20090316
  Receipt Date: 20090309
  Transmission Date: 20090719
  Serious: Yes (Other)
  Sender: FDA-Public Use
  Company Number: 211375

PATIENT
  Age: 32 Year
  Sex: Female

DRUGS (5)
  1. FENTANYL CITRATE [Suspect]
     Indication: POSTOPERATIVE ANALGESIA
     Dosage: 25 G, ONCE, EPIDURAL ; 2 G/ML INFUSION
     Route: 008
  2. BUPIVACAINE [Suspect]
     Indication: POSTOPERATIVE ANALGESIA
     Dosage: 5 ML, ONCE, EPIDURAL
     Route: 008
  3. SEVOFLURANE [Concomitant]
  4. .. [Concomitant]
  5. OXYGEN (OXYGEN) [Concomitant]

REACTIONS (2)
  - ENOPHTHALMOS [None]
  - HORNER'S SYNDROME [None]
